FAERS Safety Report 24982800 (Version 6)
Quarter: 2025Q2

REPORT INFORMATION
  Report Type: Report from Study
  Country: FR (occurrence: FR)
  Receive Date: 20250218
  Receipt Date: 20250618
  Transmission Date: 20250716
  Serious: Yes (Other)
  Sender: NOVARTIS
  Company Number: FR-002147023-NVSC2024FR227030

PATIENT
  Age: 68 Year
  Sex: Male
  Weight: 80 kg

DRUGS (6)
  1. SCEMBLIX [Suspect]
     Active Substance: ASCIMINIB HYDROCHLORIDE
     Indication: Philadelphia positive chronic myeloid leukaemia
     Dosage: 40 MG, BID
     Route: 048
     Dates: start: 20240705, end: 20241018
  2. SCEMBLIX [Suspect]
     Active Substance: ASCIMINIB HYDROCHLORIDE
     Route: 048
     Dates: start: 20241018, end: 20241027
  3. SCEMBLIX [Suspect]
     Active Substance: ASCIMINIB HYDROCHLORIDE
     Dosage: 40 MG, BID
     Route: 048
     Dates: start: 20241028, end: 20241105
  4. SCEMBLIX [Suspect]
     Active Substance: ASCIMINIB HYDROCHLORIDE
     Route: 048
     Dates: start: 20241106, end: 20241107
  5. SCEMBLIX [Suspect]
     Active Substance: ASCIMINIB HYDROCHLORIDE
     Dosage: 20 MG, BID (40 MG (TOTAL DAILY DOSE)
     Route: 065
     Dates: start: 20241108
  6. SCEMBLIX [Suspect]
     Active Substance: ASCIMINIB HYDROCHLORIDE
     Route: 048
     Dates: end: 20241106

REACTIONS (8)
  - Hyperglycaemia [Not Recovered/Not Resolved]
  - Hyperthyroidism [Not Recovered/Not Resolved]
  - Lipase increased [Recovered/Resolved]
  - Lipase increased [Recovered/Resolved]
  - Lipase increased [Recovered/Resolved]
  - Lipase increased [Recovered/Resolved]
  - Lipase increased [Recovered/Resolved]
  - Lipase increased [Recovered/Resolved]

NARRATIVE: CASE EVENT DATE: 20240817
